FAERS Safety Report 8367154-6 (Version None)
Quarter: 2012Q2

REPORT INFORMATION
  Report Type: 
  Country: None (occurrence: None)
  Receive Date: 20120517
  Receipt Date: 20120510
  Transmission Date: 20120825
  Serious: Yes (Death, Hospitalization)
  Sender: FDA-Public Use
  Company Number: IT-CELGENEUS-083-21880-12040410

PATIENT

DRUGS (3)
  1. DEXAMETHASONE SODIUM PHOSPHATE [Concomitant]
     Dosage: 20 MILLIGRAM
     Route: 048
     Dates: start: 20120214, end: 20120214
  2. PANTOPRAZOLE SODIUM [Concomitant]
     Dosage: 40 MILLIGRAM
     Route: 048
     Dates: start: 20111021, end: 20120216
  3. REVLIMID [Suspect]
     Indication: MULTIPLE MYELOMA
     Dosage: 15 MILLIGRAM
     Route: 048
     Dates: start: 20111010, end: 20120104

REACTIONS (3)
  - PNEUMONIA [None]
  - PELVIC FRACTURE [None]
  - RESPIRATORY FAILURE [None]
